FAERS Safety Report 12883403 (Version 3)
Quarter: 2016Q4

REPORT INFORMATION
  Report Type: Spontaneous
  Country: IT (occurrence: IT)
  Receive Date: 20161025
  Receipt Date: 20161123
  Transmission Date: 20170207
  Serious: Yes (Hospitalization, Other)
  Sender: FDA-Public Use
  Company Number: IT-GILEAD-2016-0238972

PATIENT
  Age: 65 Year
  Sex: Male

DRUGS (2)
  1. IDELALISIB [Suspect]
     Active Substance: IDELALISIB
     Dosage: 100 MG, BID
     Route: 065
     Dates: start: 20160429
  2. IDELALISIB [Suspect]
     Active Substance: IDELALISIB
     Indication: B-CELL LYMPHOMA
     Dosage: 150 MG,
     Route: 065
     Dates: start: 20151229, end: 20160212

REACTIONS (4)
  - Infection [Unknown]
  - Hepatotoxicity [Recovered/Resolved]
  - Diarrhoea [Recovered/Resolved]
  - Hyperthermia [Unknown]

NARRATIVE: CASE EVENT DATE: 20160217
